FAERS Safety Report 22198619 (Version 1)
Quarter: 2023Q2

REPORT INFORMATION
  Report Type: Spontaneous
  Country: US (occurrence: US)
  Receive Date: 20230411
  Receipt Date: 20230411
  Transmission Date: 20230721
  Serious: No
  Sender: FDA-Public Use
  Company Number: US-ABBVIE-4700981

PATIENT
  Age: 41 Year
  Sex: Female

DRUGS (1)
  1. HUMIRA [Suspect]
     Active Substance: ADALIMUMAB
     Indication: Uveitis
     Dosage: STRENGTH- 40 MG, START DATE TEXT: 3 TO 4 YEARS AGO
     Route: 058

REACTIONS (1)
  - Thyroid stimulating hormone deficiency [Recovering/Resolving]

NARRATIVE: CASE EVENT DATE: 20230320
